FAERS Safety Report 22232109 (Version 1)
Quarter: 2023Q2

REPORT INFORMATION
  Report Type: Spontaneous
  Country: US (occurrence: US)
  Receive Date: 20230420
  Receipt Date: 20230420
  Transmission Date: 20230721
  Serious: No
  Sender: FDA-Public Use
  Company Number: US-PTx-2023000034

PATIENT
  Sex: Female

DRUGS (4)
  1. LEUKINE [Suspect]
     Active Substance: SARGRAMOSTIM
     Indication: Acute myeloid leukaemia
     Dosage: 250 MCG:INJECT 185 MCG(0.7 ML) SUBCUTANEOUS INJECTION DAILY FOR 7 DAYS EVERY 28 DAYS
     Route: 058
  2. CEROVITE JR CHW [Concomitant]
     Indication: Product used for unknown indication
     Dosage: UNK
     Route: 065
  3. MVW COMPLETE CHW ORANGE [Concomitant]
     Indication: Product used for unknown indication
     Dosage: UNK
     Route: 065
  4. SSKI SOL [Concomitant]
     Indication: Product used for unknown indication
     Dosage: 1GM/ML
     Route: 065

REACTIONS (1)
  - Injection site erythema [Not Recovered/Not Resolved]
